FAERS Safety Report 6805042-4 (Version None)
Quarter: 2010Q2

REPORT INFORMATION
  Report Type: 
  Country: None (occurrence: None)
  Receive Date: 20100628
  Receipt Date: 20070719
  Transmission Date: 20101027
  Serious: No
  Sender: FDA-Public Use
  Company Number: US-PFIZER INC-2007061396

PATIENT
  Sex: Female
  Weight: 55 kg

DRUGS (6)
  1. CADUET [Suspect]
     Indication: BLOOD CHOLESTEROL INCREASED
     Dosage: 5/10MG
     Route: 048
     Dates: start: 20060101
  2. CADUET [Suspect]
     Indication: HYPERTENSION
  3. CALCIUM CARBONATE [Concomitant]
     Route: 048
  4. CENTRUM [Concomitant]
     Route: 048
  5. NORVASC [Concomitant]
  6. LIPITOR [Concomitant]

REACTIONS (6)
  - BLOOD GLUCOSE INCREASED [None]
  - DRY MOUTH [None]
  - DYSPHEMIA [None]
  - POLYDIPSIA [None]
  - SPEECH DISORDER [None]
  - TONGUE DRY [None]
